FAERS Safety Report 9241379 (Version 1)
Quarter: 2013Q2

REPORT INFORMATION
  Report Type: Spontaneous
  Country: US (occurrence: US)
  Receive Date: 20130419
  Receipt Date: 20130419
  Transmission Date: 20140414
  Serious: No
  Sender: FDA-Public Use
  Company Number: US-009507513-1304USA007875

PATIENT
  Age: 60 Year
  Sex: Male

DRUGS (1)
  1. SYLATRON [Suspect]
     Indication: MALIGNANT MELANOMA
     Dosage: 800 MICROGRAM, QW
     Route: 058
     Dates: start: 20130404

REACTIONS (3)
  - Bone pain [Unknown]
  - Chills [Unknown]
  - Fatigue [Unknown]
